FAERS Safety Report 23550600 (Version 2)
Quarter: 2024Q1

REPORT INFORMATION
  Report Type: Spontaneous
  Country: MX (occurrence: MX)
  Receive Date: 20240221
  Receipt Date: 20240307
  Transmission Date: 20240409
  Serious: Yes (Death, Other)
  Sender: FDA-Public Use
  Company Number: MX-JAZZ PHARMACEUTICALS-2024-MX-003016

PATIENT
  Sex: Female

DRUGS (1)
  1. DEFITELIO [Suspect]
     Active Substance: DEFIBROTIDE SODIUM
     Indication: Venoocclusive disease
     Dosage: 200 MG X 10 INY X 1 FCO
     Dates: start: 20240208, end: 20240213

REACTIONS (6)
  - Arrhythmia [Fatal]
  - Pleural effusion [Fatal]
  - Nephropathy [Fatal]
  - Mouth haemorrhage [Fatal]
  - Pancytopenia [Fatal]
  - Neurological decompensation [Fatal]

NARRATIVE: CASE EVENT DATE: 20240213
